FAERS Safety Report 16267422 (Version 1)
Quarter: 2019Q2

REPORT INFORMATION
  Report Type: Spontaneous
  Country: NL (occurrence: NL)
  Receive Date: 20190502
  Receipt Date: 20190502
  Transmission Date: 20190711
  Serious: Yes (Hospitalization)
  Sender: FDA-Public Use
  Company Number: NL-TEVA-2019-NL-1044366

PATIENT
  Age: 74 Year
  Sex: Male
  Weight: 108 kg

DRUGS (3)
  1. SOTALOL HCL TEVA 40 MG. TABLET . ( TEVA NEDERLAND BV) [Suspect]
     Active Substance: SOTALOL HYDROCHLORIDE
     Indication: ATRIAL FIBRILLATION
     Dosage: 40 MILLIGRAM DAILY;
     Dates: start: 20190306, end: 20190317
  2. RANITIDINE. [Concomitant]
     Active Substance: RANITIDINE
     Dosage: 3X DD. 150 MGR
  3. APIXABAM ( ELIQUIS) [Concomitant]
     Dosage: 2X DD. 5MGR

REACTIONS (4)
  - Palpitations [Recovering/Resolving]
  - Depressed mood [Recovering/Resolving]
  - Hypoacusis [Recovering/Resolving]
  - Chest discomfort [Recovering/Resolving]

NARRATIVE: CASE EVENT DATE: 20190310
